FAERS Safety Report 10027692 (Version 2)
Quarter: 2014Q1

REPORT INFORMATION
  Report Type: Spontaneous
  Country: IL (occurrence: IL)
  Receive Date: 20140321
  Receipt Date: 20140321
  Transmission Date: 20141002
  Serious: Yes (Other)
  Sender: FDA-Public Use
  Company Number: IL-BAYER-2014-028857

PATIENT
  Age: 19 Year
  Sex: Female

DRUGS (1)
  1. YAZ [Suspect]
     Dosage: UNK
     Dates: start: 20140221

REACTIONS (4)
  - Rash generalised [Not Recovered/Not Resolved]
  - Pharyngeal oedema [None]
  - Dyspnoea [None]
  - Dermatitis allergic [None]
